FAERS Safety Report 7190344-5 (Version None)
Quarter: 2010Q4

REPORT INFORMATION
  Report Type: 
  Country: None (occurrence: None)
  Receive Date: 20101221
  Receipt Date: 20101221
  Transmission Date: 20110411
  Serious: Yes (Other)
  Sender: FDA-Public Use
  Company Number: None

PATIENT
  Sex: Female
  Weight: 48.9885 kg

DRUGS (1)
  1. SODIUM BICARBONATE [Suspect]
     Indication: BLOOD POTASSIUM INCREASED
     Dosage: 1 PILL 2X A DAY
     Dates: start: 20100802, end: 20100920

REACTIONS (1)
  - DECREASED APPETITE [None]
